FAERS Safety Report 5025027-0 (Version None)
Quarter: 2006Q2

REPORT INFORMATION
  Report Type: 
  Country: None (occurrence: None)
  Receive Date: 20060607
  Receipt Date: 20060522
  Transmission Date: 20061013
  Serious: Yes (Death, Other)
  Sender: FDA-Public Use
  Company Number: US200512002320

PATIENT
  Age: 72 Year
  Sex: Female

DRUGS (17)
  1. FORTEO [Suspect]
     Indication: BACK PAIN
     Dates: start: 20040201, end: 20050101
  2. FORTEO [Concomitant]
  3. METFORMIN [Concomitant]
  4. GABAPENTIN [Concomitant]
  5. FLUTICASONE PROPIONATE W/SALMETEROL (FLUTICASONE PROPIONATE, SALMETERO [Concomitant]
  6. ALBUTEROL [Concomitant]
  7. SULCRATE (SUCRALFATE) [Concomitant]
  8. OMEPRAZOLE [Concomitant]
  9. OXYBUTYNIN CHLORIDE [Concomitant]
  10. ASA (ASPIRIN (ACETYLSALICYLIC ACID)) CAPSULE [Concomitant]
  11. LORAZEPAM [Concomitant]
  12. MITRIPTYLINE (AMITRIPTYLINE) [Concomitant]
  13. GLUCOSAMINE (GLUCOSAMINE) [Concomitant]
  14. CHONDROITIN (CHONDROITIN SULFATE) [Concomitant]
  15. MULTIVITAMINS, PLAIN [Concomitant]
  16. CALCIUM (CALCIUM) [Concomitant]
  17. ERGOCALCIFEROL (VITAMIN D) (ERGOCALCIFEROL (VITAMIN D) [Concomitant]

REACTIONS (15)
  - ARRHYTHMIA [None]
  - BLOOD ALKALINE PHOSPHATASE INCREASED [None]
  - COLLAPSE OF LUNG [None]
  - EXTRASKELETAL OSTEOSARCOMA [None]
  - HAEMOGLOBIN DECREASED [None]
  - HILAR LYMPHADENOPATHY [None]
  - LUNG CANCER METASTATIC [None]
  - LYMPHADENOPATHY MEDIASTINAL [None]
  - METASTASES TO BONE [None]
  - METASTASES TO CENTRAL NERVOUS SYSTEM [None]
  - METASTASES TO LIVER [None]
  - METASTASES TO SPINE [None]
  - PAIN [None]
  - PLEURAL EFFUSION [None]
  - SARCOMA [None]
